FAERS Safety Report 4727650-7 (Version None)
Quarter: 2005Q3

REPORT INFORMATION
  Report Type: 
  Country: None (occurrence: None)
  Receive Date: 20050728
  Receipt Date: 20050728
  Transmission Date: 20060218
  Serious: Yes (Life-Threatening, Hospitalization)
  Sender: FDA-Public Use
  Company Number: None

PATIENT
  Age: 76 Year
  Sex: Male
  Weight: 106.2 kg

DRUGS (10)
  1. GATIFLOXACIN [Suspect]
  2. FLUCONAZOLE IN SODIUM CHLORIDE 0.9% [Suspect]
     Dosage: 400 MGIV
     Route: 042
     Dates: start: 20050112, end: 20050112
  3. LORAZEPAM [Concomitant]
  4. HUMULIN R [Concomitant]
  5. NOVOLIN R [Concomitant]
  6. METOPROLOL XL TAB, SA [Concomitant]
  7. ACETAMINOPHEN SUPP, RTL [Concomitant]
  8. VANCOMYCIN [Concomitant]
  9. PANTOPRAZOLE NA [Concomitant]
  10. FLUCONAZOLE IN SODIUM CHLORIDE 0.9% [Concomitant]

REACTIONS (2)
  - ELECTROCARDIOGRAM QT PROLONGED [None]
  - TORSADE DE POINTES [None]
